FAERS Safety Report 16407968 (Version 3)
Quarter: 2019Q2

REPORT INFORMATION
  Report Type: Spontaneous
  Country: US (occurrence: US)
  Receive Date: 20190610
  Receipt Date: 20190621
  Transmission Date: 20190711
  Serious: No
  Sender: FDA-Public Use
  Company Number: US-TEVA-2019-US-1054572

PATIENT
  Age: 73 Year
  Sex: Male

DRUGS (1)
  1. OXYTROL [Suspect]
     Active Substance: OXYBUTYNIN
     Indication: HYPERTONIC BLADDER
     Dosage: OXYTROL TRANSDERMAL PATCH, 3.9 MG EVERY 3-4 DAYS
     Route: 062
     Dates: start: 20190508, end: 20190512

REACTIONS (7)
  - Application site rash [Recovered/Resolved]
  - Drug ineffective [Unknown]
  - Application site warmth [Recovered/Resolved]
  - Application site discomfort [Recovered/Resolved]
  - Application site erythema [Recovered/Resolved]
  - Application site pruritus [Recovered/Resolved]
  - Pain [Unknown]

NARRATIVE: CASE EVENT DATE: 201905
